FAERS Safety Report 15316816 (Version 1)
Quarter: 2018Q3

REPORT INFORMATION
  Report Type: Spontaneous
  Country: CH (occurrence: CH)
  Receive Date: 20180824
  Receipt Date: 20180824
  Transmission Date: 20181010
  Serious: Yes (Life-Threatening, Hospitalization)
  Sender: FDA-Public Use
  Company Number: -ASTRAZENECA-2018SF05214

PATIENT
  Age: 60 Year
  Sex: Male

DRUGS (5)
  1. NEXIUM MUPS [Suspect]
     Active Substance: ESOMEPRAZOLE MAGNESIUM
     Dosage: 40.0MG UNKNOWN
     Route: 048
  2. SIRDALUD [Suspect]
     Active Substance: TIZANIDINE
     Dosage: 2.0MG UNKNOWN
     Route: 048
  3. TORASEMIDE [Suspect]
     Active Substance: TORSEMIDE
     Dosage: 20.0MG UNKNOWN
     Route: 048
     Dates: start: 20180728
  4. METHADONE [Suspect]
     Active Substance: METHADONE HYDROCHLORIDE
     Indication: DRUG DEPENDENCE
     Dosage: 140.0MG UNKNOWN
     Route: 048
     Dates: end: 20180725
  5. TEMGESIC [Suspect]
     Active Substance: BUPRENORPHINE HYDROCHLORIDE
     Indication: DRUG DEPENDENCE
     Dosage: 0.2MG UNKNOWN
     Route: 060

REACTIONS (3)
  - Torsade de pointes [Not Recovered/Not Resolved]
  - Electrocardiogram QT prolonged [Not Recovered/Not Resolved]
  - Bradycardia [Not Recovered/Not Resolved]

NARRATIVE: CASE EVENT DATE: 20180729
